FAERS Safety Report 6828871-X (Version None)
Quarter: 2010Q3

REPORT INFORMATION
  Report Type: 
  Country: None (occurrence: None)
  Receive Date: 20100709
  Receipt Date: 20070221
  Transmission Date: 20110219
  Serious: No
  Sender: FDA-Public Use
  Company Number: US-PFIZER INC-2007014356

PATIENT
  Sex: Female
  Weight: 44 kg

DRUGS (8)
  1. CHANTIX [Suspect]
     Indication: SMOKING CESSATION THERAPY
     Route: 048
     Dates: start: 20070206, end: 20070216
  2. EVISTA [Concomitant]
  3. HYDROCHLOROTHIAZIDE [Concomitant]
  4. TRICOR [Concomitant]
  5. NORVASC [Concomitant]
  6. CALCIUM CARBONATE [Concomitant]
  7. VITAMINS [Concomitant]
  8. VANQUISH [Concomitant]
     Indication: HEADACHE

REACTIONS (2)
  - NASOPHARYNGITIS [None]
  - VOMITING [None]
